FAERS Safety Report 8234506-4 (Version None)
Quarter: 2012Q1

REPORT INFORMATION
  Report Type: 
  Country: None (occurrence: None)
  Receive Date: 20120326
  Receipt Date: 20120315
  Transmission Date: 20120608
  Serious: Yes (Other)
  Sender: FDA-Public Use
  Company Number: US-ROCHE-1022398

PATIENT
  Sex: Female
  Weight: 51.756 kg

DRUGS (2)
  1. ACCUTANE [Suspect]
     Indication: ACNE
     Dates: start: 20011221, end: 20020806
  2. ORTHO TRI-CYCLEN [Concomitant]
     Indication: CONTRACEPTION

REACTIONS (4)
  - MENTAL DISORDER [None]
  - CROHN'S DISEASE [None]
  - COLITIS [None]
  - IRON DEFICIENCY ANAEMIA [None]
